FAERS Safety Report 21580656 (Version 1)
Quarter: 2022Q4

REPORT INFORMATION
  Report Type: Report from Study
  Country: US (occurrence: US)
  Receive Date: 20221111
  Receipt Date: 20221111
  Transmission Date: 20230113
  Serious: Yes (Other)
  Sender: FDA-Public Use
  Company Number: US-ABBVIE-22K-163-4532334-00

PATIENT
  Sex: Male

DRUGS (1)
  1. IMBRUVICA [Suspect]
     Active Substance: IBRUTINIB
     Indication: Follicular lymphoma
     Route: 048
     Dates: start: 202001

REACTIONS (7)
  - Cataract operation [Unknown]
  - Thoracic vertebral fracture [Unknown]
  - Fall [Unknown]
  - Increased tendency to bruise [Unknown]
  - Arthritis [Unknown]
  - Dizziness [Unknown]
  - Head injury [Unknown]
